FAERS Safety Report 6256593-5 (Version None)
Quarter: 2009Q3

REPORT INFORMATION
  Report Type: 
  Country: None (occurrence: None)
  Receive Date: 20090706
  Receipt Date: 20090625
  Transmission Date: 20100115
  Serious: Yes (Other)
  Sender: FDA-Public Use
  Company Number: IT-JNJFOC-20090608746

PATIENT
  Sex: Male

DRUGS (7)
  1. PREZISTA [Suspect]
     Indication: HIV INFECTION
     Route: 048
  2. NORVIR [Suspect]
     Indication: HIV INFECTION
     Route: 048
  3. KIVEXA [Suspect]
     Indication: HIV INFECTION
     Route: 048
  4. ETHAMBUTOL [Concomitant]
  5. AZITHROMYCIN [Concomitant]
  6. MIRTAZAPINA [Concomitant]
  7. PANTOPRAZOLE SODIUM [Concomitant]

REACTIONS (1)
  - PERIPHERAL SENSORY NEUROPATHY [None]
